FAERS Safety Report 19668581 (Version 2)
Quarter: 2021Q3

REPORT INFORMATION
  Report Type: Report from Study
  Country: CA (occurrence: CA)
  Receive Date: 20210806
  Receipt Date: 20210909
  Transmission Date: 20211014
  Serious: Yes (Hospitalization, Other)
  Sender: FDA-Public Use
  Company Number: CA-ASTRAZENECA-2021A523507

PATIENT
  Sex: Male

DRUGS (6)
  1. NUCALA [Concomitant]
     Active Substance: MEPOLIZUMAB
  2. XOLAIR [Concomitant]
     Active Substance: OMALIZUMAB
  3. PULMICORT TURBUHALER [Concomitant]
     Active Substance: BUDESONIDE
     Dosage: 0.25/ML ? 2ML
  4. SALBUTAMOL [Concomitant]
     Active Substance: ALBUTEROL
     Dosage: 100MCG
  5. FASENRA [Suspect]
     Active Substance: BENRALIZUMAB
     Indication: ASTHMA
     Dosage: 30.0MG UNKNOWN
     Route: 058
     Dates: start: 20191223, end: 20201008
  6. SYMBICORT [Concomitant]
     Active Substance: BUDESONIDE\FORMOTEROL FUMARATE DIHYDRATE
     Dosage: 200/6 MCG 2 PUFFS THREE TIMES DAILY,

REACTIONS (5)
  - Renal failure [Unknown]
  - Wheezing [Unknown]
  - Drug ineffective [Unknown]
  - Asthma [Unknown]
  - Asthenia [Unknown]
